FAERS Safety Report 20256121 (Version 2)
Quarter: 2022Q1

REPORT INFORMATION
  Report Type: Spontaneous
  Country: US (occurrence: US)
  Receive Date: 20211230
  Receipt Date: 20220210
  Transmission Date: 20220423
  Serious: No
  Sender: FDA-Public Use
  Company Number: US-VERTEX PHARMACEUTICALS-2021-020175

PATIENT
  Age: 18 Year
  Sex: Male

DRUGS (4)
  1. TRIKAFTA [Interacting]
     Active Substance: ELEXACAFTOR\IVACAFTOR\TEZACAFTOR
     Indication: Cystic fibrosis
     Dosage: HALF DOSE
     Route: 048
  2. TRIKAFTA [Interacting]
     Active Substance: ELEXACAFTOR\IVACAFTOR\TEZACAFTOR
     Dosage: QUARTER DOSE (CUTTING TABLETS IN HALF OF THE TRIKAFTA 50
     Route: 048
  3. TACROLIMUS [Interacting]
     Active Substance: TACROLIMUS
     Indication: Immunosuppression
     Dosage: UNK
     Route: 065
  4. TACROLIMUS [Interacting]
     Active Substance: TACROLIMUS
     Dosage: REDUCED
     Route: 065

REACTIONS (3)
  - Blood creatinine increased [Recovered/Resolved]
  - Immunosuppressant drug level increased [Recovered/Resolved]
  - Drug interaction [Unknown]

NARRATIVE: CASE EVENT DATE: 20210721
